FAERS Safety Report 16138869 (Version 1)
Quarter: 2019Q2

REPORT INFORMATION
  Report Type: Other
  Country: DE (occurrence: DE)
  Receive Date: 20190401
  Receipt Date: 20190401
  Transmission Date: 20190711
  Serious: No
  Sender: FDA-Public Use
  Company Number: DE-LUPIN PHARMACEUTICALS INC.-2018-05765

PATIENT
  Age: 33 Year
  Sex: Female

DRUGS (15)
  1. QUETIAPINE. [Concomitant]
     Active Substance: QUETIAPINE
     Indication: PRODUCT USED FOR UNKNOWN INDICATION
     Dosage: 200 MG, QD
     Route: 048
     Dates: start: 20170130, end: 20170131
  2. QUETIAPINE. [Concomitant]
     Active Substance: QUETIAPINE
     Dosage: 100 MG, QD
     Route: 048
     Dates: start: 20170529
  3. QUETIAPINE. [Concomitant]
     Active Substance: QUETIAPINE
     Dosage: 400 MG, QD
     Route: 048
     Dates: start: 20170603, end: 20170626
  4. OLANZAPINE. [Concomitant]
     Active Substance: OLANZAPINE
     Dosage: 15 MG, QD
     Route: 048
     Dates: start: 20170801, end: 20170820
  5. QUETIAPINE. [Concomitant]
     Active Substance: QUETIAPINE
     Dosage: 300 MG, QD
     Route: 048
     Dates: start: 20170601, end: 20170602
  6. SERTRALINE [Suspect]
     Active Substance: SERTRALINE HYDROCHLORIDE
     Indication: PRODUCT USED FOR UNKNOWN INDICATION
     Dosage: 25 MG, QD
     Route: 048
     Dates: start: 20170614, end: 20170615
  7. BISOPROLOL [Concomitant]
     Active Substance: BISOPROLOL
     Indication: PRODUCT USED FOR UNKNOWN INDICATION
     Dosage: 2.5 MG, QD
     Route: 048
     Dates: start: 20170523
  8. SERTRALINE [Suspect]
     Active Substance: SERTRALINE HYDROCHLORIDE
     Dosage: 50 MG, QD
     Route: 048
     Dates: start: 20170616, end: 20170627
  9. OLANZAPINE. [Concomitant]
     Active Substance: OLANZAPINE
     Dosage: 12.5 MG, QD
     Route: 048
     Dates: start: 20170721, end: 20170731
  10. OLANZAPINE. [Concomitant]
     Active Substance: OLANZAPINE
     Dosage: 10 MG, UNK
     Route: 048
     Dates: start: 20170607
  11. OLANZAPINE. [Concomitant]
     Active Substance: OLANZAPINE
     Dosage: 15 MG, QD
     Route: 048
     Dates: start: 20170608, end: 20170720
  12. SERTRALINE [Suspect]
     Active Substance: SERTRALINE HYDROCHLORIDE
     Dosage: 75 MG, QD
     Route: 048
     Dates: start: 20170628, end: 20170712
  13. QUETIAPINE. [Concomitant]
     Active Substance: QUETIAPINE
     Dosage: 200 MG, QD
     Dates: start: 20170627, end: 20170702
  14. OLANZAPINE. [Concomitant]
     Active Substance: OLANZAPINE
     Dosage: 10 MG, QD
     Route: 048
     Dates: start: 20170821
  15. OLANZAPINE. [Concomitant]
     Active Substance: OLANZAPINE
     Indication: PRODUCT USED FOR UNKNOWN INDICATION
     Dosage: 5 MG, QD
     Route: 048
     Dates: start: 20170606

REACTIONS (1)
  - Diarrhoea [Recovered/Resolved]

NARRATIVE: CASE EVENT DATE: 20170629
